FAERS Safety Report 9960141 (Version 2)
Quarter: 2014Q1

REPORT INFORMATION
  Report Type: Report from Study
  Country: US (occurrence: US)
  Receive Date: 20140305
  Receipt Date: 20140305
  Transmission Date: 20141002
  Serious: No
  Sender: FDA-Public Use
  Company Number: US-ABBVIE-09P-163-0607478-00

PATIENT
  Age: 62 Year
  Sex: Female
  Weight: 68.1 kg

DRUGS (11)
  1. HUMIRA 40 MG/0.8 ML PEN [Suspect]
     Indication: PSORIASIS
     Route: 058
     Dates: start: 20090722, end: 20090826
  2. HUMIRA 40 MG/0.8 ML PEN [Suspect]
     Route: 058
     Dates: start: 20090923, end: 200910
  3. HUMIRA 40 MG/0.8 ML PEN [Suspect]
     Route: 058
  4. HUMIRA 40 MG/0.8 ML PEN [Suspect]
  5. PREMPRO [Concomitant]
     Indication: HORMONE REPLACEMENT THERAPY
     Route: 048
  6. PREMPRO [Concomitant]
     Indication: HOT FLUSH
  7. KLONOPIN [Concomitant]
     Indication: ANXIETY
     Route: 048
  8. KLONOPIN [Concomitant]
     Indication: DEPRESSION
  9. WELLBUTRIN XR [Concomitant]
     Indication: DEPRESSION
     Route: 048
  10. PRILOSEC [Concomitant]
     Indication: GASTROOESOPHAGEAL REFLUX DISEASE
  11. PROZAC [Concomitant]
     Indication: DEPRESSION

REACTIONS (10)
  - Injection site erythema [Recovered/Resolved with Sequelae]
  - Gingival swelling [Recovered/Resolved]
  - Gingivitis [Recovered/Resolved]
  - Nasopharyngitis [Recovered/Resolved]
  - Injection site pruritus [Not Recovered/Not Resolved]
  - Injection site swelling [Recovered/Resolved]
  - Injection site erythema [Recovered/Resolved]
  - Injection site pruritus [Recovered/Resolved]
  - Inappropriate schedule of drug administration [Recovered/Resolved]
  - Psoriasis [Recovered/Resolved]
